FAERS Safety Report 7414754-3 (Version None)
Quarter: 2011Q1

REPORT INFORMATION
  Report Type: 
  Country: None (occurrence: None)
  Receive Date: 20110301
  Receipt Date: 20100922
  Transmission Date: 20110831
  Serious: Yes (Hospitalization)
  Sender: FDA-Public Use
  Company Number: US-JNJFOC-20070703454

PATIENT
  Age: 27 Year
  Sex: Female
  Weight: 86.1834 kg

DRUGS (5)
  1. WELLBUTRIN (IBUPROFEN) [Concomitant]
  2. MOTRIN [Suspect]
     Indication: MUSCLE SPASMS
     Dosage: 800 MG, 3 IN 1 DAY
     Dates: start: 19830101
  3. MOTRIN [Suspect]
     Indication: INFLAMMATION
     Dosage: 800 MG, 3 IN 1 DAY
     Dates: start: 19830101
  4. MOTRIN [Suspect]
     Indication: ARTHRITIS
     Dosage: 800 MG, 3 IN 1 DAY
     Dates: start: 19830101
  5. MOTRIN [Suspect]
     Indication: MIGRAINE
     Dosage: 800 MG, 3 IN 1 DAY
     Dates: start: 19830101

REACTIONS (4)
  - HIATUS HERNIA [None]
  - GASTROOESOPHAGEAL REFLUX DISEASE [None]
  - VOMITING [None]
  - ULCER [None]
